FAERS Safety Report 4524789-6 (Version None)
Quarter: 2004Q4

REPORT INFORMATION
  Report Type: 
  Country: None (occurrence: None)
  Receive Date: 20041213
  Receipt Date: 20041008
  Transmission Date: 20050328
  Serious: Yes (Death, Hospitalization)
  Sender: FDA-Public Use
  Company Number: 200417720US

PATIENT
  Age: 62 Year
  Sex: Female

DRUGS (9)
  1. ARAVA [Suspect]
     Indication: RHEUMATOID ARTHRITIS
     Dosage: DOSE: UNK
  2. PLAVIX [Suspect]
     Indication: STENT PLACEMENT
     Dosage: DOSE: UNK
  3. SKELAXIN [Concomitant]
     Dosage: DOSE: UNK
  4. GLIPIZIDE [Concomitant]
  5. MIRAPEX [Concomitant]
  6. TOPROL-XL [Concomitant]
  7. NEURONTIN [Concomitant]
  8. PROTONIX [Concomitant]
  9. MEDROL [Concomitant]
     Dosage: DOSE: UNK

REACTIONS (1)
  - STEVENS-JOHNSON SYNDROME [None]
